FAERS Safety Report 12236306 (Version 2)
Quarter: 2016Q2

REPORT INFORMATION
  Report Type: Spontaneous
  Country: US (occurrence: US)
  Receive Date: 20160404
  Receipt Date: 20160418
  Transmission Date: 20160815
  Serious: No
  Sender: FDA-Public Use
  Company Number: US-PFIZER INC-2016186909

PATIENT
  Sex: Male

DRUGS (3)
  1. QUILLIVANT XR [Suspect]
     Active Substance: METHYLPHENIDATE HYDROCHLORIDE
     Dosage: 4 ML, DAILY
  2. QUILLIVANT XR [Suspect]
     Active Substance: METHYLPHENIDATE HYDROCHLORIDE
     Indication: ATTENTION DEFICIT/HYPERACTIVITY DISORDER
     Dosage: UNK
  3. QUILLIVANT XR [Suspect]
     Active Substance: METHYLPHENIDATE HYDROCHLORIDE
     Dosage: 25MG/5ML, 4.25MLS OR 4.5MLS ONCE DAILY
     Dates: start: 20160330

REACTIONS (5)
  - Hyperventilation [Unknown]
  - Intentional product misuse [Unknown]
  - Personality change [Unknown]
  - Abnormal behaviour [Unknown]
  - Mood swings [Unknown]

NARRATIVE: CASE EVENT DATE: 20160330
